FAERS Safety Report 21194796 (Version 1)
Quarter: 2022Q3

REPORT INFORMATION
  Report Type: Spontaneous
  Country: US (occurrence: None)
  Receive Date: 20220809
  Receipt Date: 20220809
  Transmission Date: 20221027
  Serious: Yes (Hospitalization)
  Sender: FDA-Public Use
  Company Number: None

PATIENT
  Age: 56 Year
  Sex: Female
  Weight: 74.89 kg

DRUGS (24)
  1. PACLITAXEL [Suspect]
     Active Substance: PACLITAXEL
     Indication: Breast cancer female
     Dosage: FREQUENCY : WEEKLY;?
     Route: 042
     Dates: start: 20211223
  2. APREPITANT [Suspect]
     Active Substance: APREPITANT
     Indication: Breast cancer female
     Dosage: FREQUENCY : DAILY;?
     Route: 048
     Dates: start: 20211223
  3. ABD PAD [Concomitant]
  4. ACETAMINOPHEN [Concomitant]
     Active Substance: ACETAMINOPHEN
  5. ADRIAMYCIN [Concomitant]
     Active Substance: DOXORUBICIN HYDROCHLORIDE
  6. ANASTROZOLE [Concomitant]
     Active Substance: ANASTROZOLE
  7. AUGMENTIN [Concomitant]
     Active Substance: AMOXICILLIN\CLAVULANATE POTASSIUM
  8. CALCIUM\VITAMIN D [Concomitant]
     Active Substance: CALCIUM\VITAMIN D
  9. CYCLOPHOSPHAMIDE [Concomitant]
     Active Substance: CYCLOPHOSPHAMIDE
  10. DOXORUBICIN [Concomitant]
     Active Substance: DOXORUBICIN
  11. ENOXAPARIN [Concomitant]
     Active Substance: ENOXAPARIN
  12. ERGOCALCIFEROL [Concomitant]
     Active Substance: ERGOCALCIFEROL
  13. GABAPENTIN [Concomitant]
     Active Substance: GABAPENTIN
  14. LACTATED RINGERS SOLUTION [Concomitant]
     Active Substance: CALCIUM CHLORIDE\POTASSIUM CHLORIDE\SODIUM CHLORIDE\SODIUM LACTATE
  15. MIRTAZAPINE [Concomitant]
     Active Substance: MIRTAZAPINE
  16. MORPHINE [Concomitant]
     Active Substance: MORPHINE
  17. OXYCODONE [Concomitant]
     Active Substance: OXYCODONE
  18. PERCOCET [Concomitant]
     Active Substance: ACETAMINOPHEN\OXYCODONE HYDROCHLORIDE
  19. HIGH DENSITY POLYETHYLENE [Concomitant]
     Active Substance: HIGH DENSITY POLYETHYLENE
  20. SENNA [Concomitant]
     Active Substance: SENNA LEAF\SENNOSIDES\SENNOSIDES A AND B
  21. SODIUM CHLORIDE [Concomitant]
     Active Substance: SODIUM CHLORIDE
  22. TRAMADOL [Concomitant]
     Active Substance: TRAMADOL
  23. VANCOMYCIN [Concomitant]
     Active Substance: VANCOMYCIN
  24. ZOSYN [Concomitant]
     Active Substance: PIPERACILLIN SODIUM\TAZOBACTAM SODIUM

REACTIONS (2)
  - Peripheral swelling [None]
  - Gait inability [None]
